FAERS Safety Report 7007195-4 (Version None)
Quarter: 2010Q3

REPORT INFORMATION
  Report Type: 
  Country: None (occurrence: None)
  Receive Date: 20100922
  Receipt Date: 20100913
  Transmission Date: 20110219
  Serious: Yes (Hospitalization)
  Sender: FDA-Public Use
  Company Number: FR-BAYER-201039795GPV

PATIENT
  Age: 86 Year
  Sex: Female

DRUGS (4)
  1. MOXIFLOXACIN HCL [Interacting]
     Indication: RESPIRATORY TRACT INFECTION
     Route: 048
     Dates: start: 20100120, end: 20100127
  2. TOPREC [Interacting]
     Indication: PAIN
     Dosage: UNIT DOSE: 25 MG
     Route: 048
     Dates: end: 20100127
  3. PREVISCAN [Interacting]
     Indication: THROMBOSIS PROPHYLAXIS
     Dosage: UNIT DOSE: 20 MG
     Route: 048
     Dates: start: 20080301, end: 20100127
  4. ZOLOFT [Suspect]
     Indication: DEPRESSION
     Dosage: UNIT DOSE: 50 MG
     Route: 048

REACTIONS (2)
  - ANAEMIA [None]
  - INTERNATIONAL NORMALISED RATIO INCREASED [None]
